FAERS Safety Report 10600931 (Version 2)
Quarter: 2014Q4

REPORT INFORMATION
  Report Type: Spontaneous
  Country: US (occurrence: None)
  Receive Date: 20141120
  Receipt Date: 20141211
  Transmission Date: 20150529
  Serious: Yes (Other)
  Sender: FDA-Public Use
  Company Number: 2014-US-014823

PATIENT
  Age: 53 Year
  Sex: Female
  Weight: 75.5 kg

DRUGS (2)
  1. XYREM [Suspect]
     Active Substance: SODIUM OXYBATE
     Indication: CATAPLEXY
     Route: 048
     Dates: start: 201311
  2. XYREM [Suspect]
     Active Substance: SODIUM OXYBATE
     Indication: NARCOLEPSY
     Route: 048
     Dates: start: 201311

REACTIONS (15)
  - Vomiting [None]
  - Ocular hyperaemia [None]
  - Feeding disorder [None]
  - Weight decreased [None]
  - Pain [None]
  - Nausea [None]
  - Concussion [None]
  - Head injury [None]
  - Fall [None]
  - Swelling [None]
  - Blindness [None]
  - Iritis [None]
  - Loss of consciousness [None]
  - Feeling drunk [None]
  - Hangover [None]

NARRATIVE: CASE EVENT DATE: 2014
